FAERS Safety Report 20049402 (Version 2)
Quarter: 2022Q1

REPORT INFORMATION
  Report Type: Spontaneous
  Country: CA (occurrence: CA)
  Receive Date: 20211109
  Receipt Date: 20220214
  Transmission Date: 20220423
  Serious: Yes (Death, Hospitalization, Other)
  Sender: FDA-Public Use
  Company Number: CA-PFIZER INC-2020453433

PATIENT
  Age: 77 Year
  Sex: Male
  Weight: 54.5 kg

DRUGS (4)
  1. RUXIENCE [Suspect]
     Active Substance: RITUXIMAB-PVVR
     Indication: Microscopic polyangiitis
     Dosage: 500 MG AT DAY 0 AND 14, THEN 500 MG EVERY 6 MONTHS
     Route: 042
     Dates: start: 20210111, end: 20210111
  2. RUXIENCE [Suspect]
     Active Substance: RITUXIMAB-PVVR
     Dosage: 500 MG AT DAY 0 AND 14, THEN 500 MG EVERY 6 MONTHS
     Route: 042
     Dates: start: 20210125, end: 20210125
  3. RUXIENCE [Suspect]
     Active Substance: RITUXIMAB-PVVR
     Dosage: 500 MG AT DAY 0 AND 14, THEN 500 MG EVERY 6 MONTHS
     Route: 042
     Dates: start: 20210722, end: 20210722
  4. RUXIENCE [Suspect]
     Active Substance: RITUXIMAB-PVVR
     Dosage: 500 MG AT DAY 0 AND 14, THEN 500 MG EVERY 6 MONTHS
     Route: 042
     Dates: start: 20210805, end: 20210805

REACTIONS (9)
  - Death [Fatal]
  - Endocarditis [Unknown]
  - Headache [Unknown]
  - Migraine [Unknown]
  - Weight increased [Unknown]
  - Off label use [Unknown]
  - Off label use [Unknown]
  - Intentional product use issue [Unknown]
  - Inappropriate schedule of product administration [Unknown]

NARRATIVE: CASE EVENT DATE: 20210101
